FAERS Safety Report 7005008-8 (Version None)
Quarter: 2010Q3

REPORT INFORMATION
  Report Type: 
  Country: None (occurrence: None)
  Receive Date: 20100921
  Receipt Date: 20100913
  Transmission Date: 20110219
  Serious: Yes (Death)
  Sender: FDA-Public Use
  Company Number: US-WYE-H17490210

PATIENT

DRUGS (2)
  1. TYGACIL [Suspect]
     Indication: SKIN INFECTION
     Dosage: UNKNOWN
  2. TYGACIL [Suspect]
     Indication: SOFT TISSUE INFECTION

REACTIONS (1)
  - DEATH [None]
